FAERS Safety Report 10150200 (Version 1)
Quarter: 2014Q2

REPORT INFORMATION
  Report Type: Spontaneous
  Country: US (occurrence: None)
  Receive Date: 20140501
  Receipt Date: 20140501
  Transmission Date: 20141212
  Serious: Yes (Hospitalization)
  Sender: FDA-Public Use
  Company Number: None

PATIENT
  Age: 86 Year
  Sex: Female

DRUGS (10)
  1. FESOTERODINE [Suspect]
     Indication: HYPERTONIC BLADDER
     Route: 048
     Dates: start: 20130927, end: 20130929
  2. ALBUTEROL [Concomitant]
  3. ALENDRONATE [Concomitant]
  4. ALLOPURINOL [Concomitant]
  5. AMLODIPINE [Concomitant]
  6. DOCUSATE [Concomitant]
  7. ESOMEPRAZOLE [Concomitant]
  8. CYCLOBENZAPRINE [Concomitant]
  9. LISINOPRIL [Concomitant]
  10. ESZOPICLONE [Concomitant]

REACTIONS (4)
  - Feeling abnormal [None]
  - Feeding disorder [None]
  - Fall [None]
  - Confusional state [None]
